FAERS Safety Report 21967786 (Version 1)
Quarter: 2023Q1

REPORT INFORMATION
  Report Type: Report from Study
  Country: CA (occurrence: CA)
  Receive Date: 20230208
  Receipt Date: 20230208
  Transmission Date: 20230418
  Serious: Yes (Other)
  Sender: FDA-Public Use
  Company Number: CA-002147023-PHHY2016CA088509

PATIENT
  Age: 23 Year
  Sex: Female

DRUGS (15)
  1. ILARIS [Suspect]
     Active Substance: CANAKINUMAB
     Indication: Muckle-Wells syndrome
     Dosage: 150 MG (EVERY 7 WEEKS)
     Route: 058
     Dates: start: 20140901, end: 20161115
  2. ILARIS [Suspect]
     Active Substance: CANAKINUMAB
     Dosage: 150 MG, EVERY 7 WEEKS
     Route: 058
     Dates: start: 20140901
  3. ILARIS [Suspect]
     Active Substance: CANAKINUMAB
     Dosage: 150 MG, EVERY 7 WEEKS
     Route: 058
     Dates: start: 20140901
  4. ILARIS [Suspect]
     Active Substance: CANAKINUMAB
     Dosage: 150 MG, EVERY 7 WEEKS
     Route: 058
     Dates: start: 20161115
  5. ILARIS [Suspect]
     Active Substance: CANAKINUMAB
     Dosage: UNK
     Route: 058
     Dates: start: 20171219
  6. ILARIS [Suspect]
     Active Substance: CANAKINUMAB
     Dosage: 150 MG, EVERY 7 WEEKS
     Route: 058
     Dates: start: 20180222
  7. ILARIS [Suspect]
     Active Substance: CANAKINUMAB
     Dosage: 150 MG, EVERY 7 WEEKS
     Route: 058
     Dates: start: 20190821
  8. ILARIS [Suspect]
     Active Substance: CANAKINUMAB
     Dosage: 150 MG, EVERY 7 WEEKS
     Route: 058
     Dates: start: 20191211
  9. ILARIS [Suspect]
     Active Substance: CANAKINUMAB
     Dosage: UNK
     Route: 065
     Dates: start: 20200220
  10. ILARIS [Suspect]
     Active Substance: CANAKINUMAB
     Dosage: 150 MG, EVERY 7 WEEKS
     Route: 058
     Dates: start: 20200415
  11. ILARIS [Suspect]
     Active Substance: CANAKINUMAB
     Dosage: 150 MG, EVERY 7 WEEKS
     Route: 058
     Dates: start: 20200810
  12. ILARIS [Suspect]
     Active Substance: CANAKINUMAB
     Dosage: 150 MG EVERY 8 WEEKS
     Route: 058
  13. ILARIS [Suspect]
     Active Substance: CANAKINUMAB
     Dosage: UNK
     Route: 065
     Dates: start: 20220414
  14. ILARIS [Suspect]
     Active Substance: CANAKINUMAB
     Dosage: 150 MG, (EVERY 7 WEEKS)
     Route: 058
  15. ILARIS [Suspect]
     Active Substance: CANAKINUMAB
     Dosage: UNK
     Route: 065
     Dates: start: 20220923

REACTIONS (24)
  - Serum amyloid A protein increased [Unknown]
  - Heart rate increased [Unknown]
  - Blood pressure abnormal [Unknown]
  - SARS-CoV-2 test positive [Unknown]
  - Skin irritation [Unknown]
  - Malaise [Unknown]
  - Eye irritation [Unknown]
  - Myalgia [Unknown]
  - Oropharyngeal pain [Unknown]
  - Cough [Unknown]
  - Influenza like illness [Unknown]
  - Arthralgia [Unknown]
  - Weight increased [Unknown]
  - Blood pressure increased [Unknown]
  - Urticaria [Unknown]
  - Fatigue [Unknown]
  - Conjunctivitis [Unknown]
  - Ocular discomfort [Unknown]
  - Nasopharyngitis [Unknown]
  - Muckle-Wells syndrome [Unknown]
  - Bone pain [Unknown]
  - Pyrexia [Unknown]
  - Product dose omission issue [Unknown]
  - Inappropriate schedule of product administration [Unknown]

NARRATIVE: CASE EVENT DATE: 20150706
